FAERS Safety Report 7680053-8 (Version None)
Quarter: 2011Q3

REPORT INFORMATION
  Report Type: 
  Country: None (occurrence: None)
  Receive Date: 20110805
  Receipt Date: 20110727
  Transmission Date: 20111222
  Serious: Yes (Life-Threatening, Hospitalization)
  Sender: FDA-Public Use
  Company Number: 2011SP023770

PATIENT
  Age: 50 Year
  Sex: Male
  Weight: 111.5849 kg

DRUGS (3)
  1. RIBAVIRIN [Suspect]
     Indication: HEPATITIS C
     Dosage: 1000 MG;QD;PO
     Route: 048
     Dates: start: 20100628, end: 20110421
  2. BOCEPREVIR [Suspect]
     Indication: HEPATITIS C
     Dosage: 2400 MG;QD;PO
     Route: 048
     Dates: start: 20100611, end: 20110421
  3. PEGINTERFERON ALFA-2A [Suspect]
     Indication: HEPATITIS C
     Dosage: 150 MG;QW
     Dates: start: 20101019, end: 20110408

REACTIONS (3)
  - CLOSTRIDIUM TEST POSITIVE [None]
  - PYREXIA [None]
  - MEGACOLON [None]
